FAERS Safety Report 24120687 (Version 1)
Quarter: 2024Q3

REPORT INFORMATION
  Report Type: Other
  Country: US (occurrence: US)
  Receive Date: 20240722
  Receipt Date: 20240722
  Transmission Date: 20241017
  Serious: Yes (Hospitalization, Other)
  Sender: Spectra Medical Devices
  Company Number: US-Spectra Medical Devices, LLC-2159426

PATIENT
  Age: 81 Year
  Sex: Female
  Weight: 65 kg

DRUGS (1)
  1. LIDOCAINE HYDROCHLORIDE [Suspect]
     Active Substance: LIDOCAINE HYDROCHLORIDE
     Indication: Product used for unknown indication
     Route: 065

REACTIONS (7)
  - Local anaesthetic systemic toxicity [Recovered/Resolved]
  - Incorrect product formulation administered [Unknown]
  - Blood lactic acid increased [Recovered/Resolved]
  - Pulse absent [Recovered/Resolved]
  - Encephalopathy [Recovered/Resolved]
  - Apnoea [Recovered/Resolved]
  - Generalised tonic-clonic seizure [Recovered/Resolved]
